FAERS Safety Report 8487683 (Version 3)
Quarter: 2012Q4

REPORT INFORMATION
  Report Type: 
  Country: US (occurrence: US)
  Receive Date: 20120402
  Receipt Date: 20121115
  Transmission Date: 20130627
  Serious: Yes (Hospitalization, Other)
  Sender: FDA-Public Use
  Company Number: US-ASTRAZENECA-2011SE72815

PATIENT
  Age: 63 Year
  Sex: Female
  Weight: 65.8 kg

DRUGS (13)
  1. NEXIUM [Suspect]
     Indication: GASTROOESOPHAGEAL REFLUX DISEASE
     Route: 048
  2. NEXIUM [Suspect]
     Indication: GASTROOESOPHAGEAL REFLUX DISEASE
     Route: 048
  3. SEROQUEL [Suspect]
     Indication: BIPOLAR DISORDER
     Route: 048
  4. SEROQUEL [Suspect]
     Indication: SLEEP DISORDER
     Route: 048
  5. SEROQUEL [Suspect]
     Indication: BIPOLAR DISORDER
     Dosage: AT NIGHT
     Route: 048
     Dates: end: 2012
  6. SEROQUEL [Suspect]
     Indication: SLEEP DISORDER
     Dosage: AT NIGHT
     Route: 048
     Dates: end: 2012
  7. SEROQUEL [Suspect]
     Indication: BIPOLAR DISORDER
     Route: 048
     Dates: start: 2012, end: 2012
  8. SEROQUEL [Suspect]
     Indication: SLEEP DISORDER
     Route: 048
     Dates: start: 2012, end: 2012
  9. PROZAC [Concomitant]
     Indication: DEPRESSION
     Route: 048
  10. PROZAC [Concomitant]
     Indication: ANXIETY
     Route: 048
  11. PERCOCET [Concomitant]
     Indication: PAIN
     Dosage: 10/325 MG, Q4H PRN
     Route: 048
  12. XANAX [Concomitant]
     Indication: NERVOUS SYSTEM DISORDER
     Dosage: 2 MG, DAILY, PRN
     Route: 048
  13. FLURAZEPAM [Concomitant]
     Indication: NERVOUS SYSTEM DISORDER

REACTIONS (21)
  - Musculoskeletal disorder [Unknown]
  - Exostosis [Unknown]
  - Cataract [Unknown]
  - Dysphagia [Unknown]
  - Gastrooesophageal reflux disease [Unknown]
  - Dyspepsia [Unknown]
  - Drug withdrawal syndrome [Unknown]
  - Tremor [Unknown]
  - Heart rate increased [Unknown]
  - Peripheral coldness [Unknown]
  - Dark circles under eyes [Unknown]
  - Chills [Unknown]
  - Weight increased [Unknown]
  - Vitreous floaters [Unknown]
  - Dysarthria [Unknown]
  - Hyperhidrosis [Unknown]
  - Confusional state [Unknown]
  - Somnolence [Unknown]
  - Intentional drug misuse [Unknown]
  - Drug dose omission [Unknown]
  - Drug ineffective [Unknown]
